FAERS Safety Report 19412148 (Version 1)
Quarter: 2021Q2

REPORT INFORMATION
  Report Type: Report from Study
  Country: None (occurrence: AR)
  Receive Date: 20210614
  Receipt Date: 20210614
  Transmission Date: 20210717
  Serious: Yes (Other)
  Sender: FDA-Public Use
  Company Number: AR-ABBVIE-21K-007-3947115-00

PATIENT
  Age: 60 Year
  Sex: Male

DRUGS (1)
  1. HUMIRA [Suspect]
     Active Substance: ADALIMUMAB
     Indication: PSORIASIS
     Route: 058
     Dates: start: 20170717

REACTIONS (5)
  - Thrombosis [Unknown]
  - Infarction [Unknown]
  - Tremor [Recovering/Resolving]
  - COVID-19 [Recovered/Resolved with Sequelae]
  - Speech disorder [Recovering/Resolving]

NARRATIVE: CASE EVENT DATE: 20210331
